FAERS Safety Report 25638520 (Version 1)
Quarter: 2025Q3

REPORT INFORMATION
  Report Type: Spontaneous
  Country: EU (occurrence: EU)
  Receive Date: 20250804
  Receipt Date: 20250804
  Transmission Date: 20251021
  Serious: Yes (Hospitalization)
  Sender: MYLAN
  Company Number: None

PATIENT
  Age: 31 Year
  Sex: Male
  Weight: 79 kg

DRUGS (16)
  1. PANTOPRAZOLE [Suspect]
     Active Substance: PANTOPRAZOLE
     Indication: Ulcer
     Dosage: 40 MILLIGRAM, QD (40MG/D)
     Dates: start: 20250513, end: 20250523
  2. PANTOPRAZOLE [Suspect]
     Active Substance: PANTOPRAZOLE
     Dosage: 40 MILLIGRAM, QD (40MG/D)
     Route: 048
     Dates: start: 20250513, end: 20250523
  3. PANTOPRAZOLE [Suspect]
     Active Substance: PANTOPRAZOLE
     Dosage: 40 MILLIGRAM, QD (40MG/D)
     Route: 048
     Dates: start: 20250513, end: 20250523
  4. PANTOPRAZOLE [Suspect]
     Active Substance: PANTOPRAZOLE
     Dosage: 40 MILLIGRAM, QD (40MG/D)
     Dates: start: 20250513, end: 20250523
  5. TEICOPLANIN [Suspect]
     Active Substance: TEICOPLANIN
     Indication: Urinary tract infection
     Dosage: 1200 MILLIGRAM, QD (600MG 2X/D)
     Dates: start: 20250503, end: 20250523
  6. TEICOPLANIN [Suspect]
     Active Substance: TEICOPLANIN
     Dosage: 1200 MILLIGRAM, QD (600MG 2X/D)
     Route: 048
     Dates: start: 20250503, end: 20250523
  7. TEICOPLANIN [Suspect]
     Active Substance: TEICOPLANIN
     Dosage: 1200 MILLIGRAM, QD (600MG 2X/D)
     Route: 048
     Dates: start: 20250503, end: 20250523
  8. TEICOPLANIN [Suspect]
     Active Substance: TEICOPLANIN
     Dosage: 1200 MILLIGRAM, QD (600MG 2X/D)
     Dates: start: 20250503, end: 20250523
  9. PIPERACILLIN SODIUM\TAZOBACTAM SODIUM [Concomitant]
     Active Substance: PIPERACILLIN SODIUM\TAZOBACTAM SODIUM
     Indication: Prophylaxis
     Dosage: 2 DOSAGE FORM, QD (4 G/500MG 2 TIMES A DAY)
     Dates: start: 20250514, end: 20250520
  10. PIPERACILLIN SODIUM\TAZOBACTAM SODIUM [Concomitant]
     Active Substance: PIPERACILLIN SODIUM\TAZOBACTAM SODIUM
     Dosage: 2 DOSAGE FORM, QD (4 G/500MG 2 TIMES A DAY)
     Route: 048
     Dates: start: 20250514, end: 20250520
  11. PIPERACILLIN SODIUM\TAZOBACTAM SODIUM [Concomitant]
     Active Substance: PIPERACILLIN SODIUM\TAZOBACTAM SODIUM
     Dosage: 2 DOSAGE FORM, QD (4 G/500MG 2 TIMES A DAY)
     Route: 048
     Dates: start: 20250514, end: 20250520
  12. PIPERACILLIN SODIUM\TAZOBACTAM SODIUM [Concomitant]
     Active Substance: PIPERACILLIN SODIUM\TAZOBACTAM SODIUM
     Dosage: 2 DOSAGE FORM, QD (4 G/500MG 2 TIMES A DAY)
     Dates: start: 20250514, end: 20250520
  13. FLUCONAZOLE [Concomitant]
     Active Substance: FLUCONAZOLE
     Indication: Product used for unknown indication
     Dosage: 100 MILLIGRAM, QD
     Dates: start: 20250425, end: 20250508
  14. FLUCONAZOLE [Concomitant]
     Active Substance: FLUCONAZOLE
     Dosage: 100 MILLIGRAM, QD
     Route: 048
     Dates: start: 20250425, end: 20250508
  15. FLUCONAZOLE [Concomitant]
     Active Substance: FLUCONAZOLE
     Dosage: 100 MILLIGRAM, QD
     Route: 048
     Dates: start: 20250425, end: 20250508
  16. FLUCONAZOLE [Concomitant]
     Active Substance: FLUCONAZOLE
     Dosage: 100 MILLIGRAM, QD
     Dates: start: 20250425, end: 20250508

REACTIONS (1)
  - Immune thrombocytopenia [Recovered/Resolved]

NARRATIVE: CASE EVENT DATE: 20250523
